FAERS Safety Report 24097091 (Version 1)
Quarter: 2024Q3

REPORT INFORMATION
  Report Type: Spontaneous
  Country: US (occurrence: US)
  Receive Date: 20240716
  Receipt Date: 20240716
  Transmission Date: 20241016
  Serious: Yes (Death, Other)
  Sender: PFIZER
  Company Number: US-PFIZER INC-202400215310

PATIENT
  Age: 66 Year
  Sex: Female

DRUGS (1)
  1. TUKYSA [Suspect]
     Active Substance: TUCATINIB
     Dosage: 500 MG, 2X/DAY
     Route: 048
     Dates: start: 20240425

REACTIONS (1)
  - Death [Fatal]

NARRATIVE: CASE EVENT DATE: 20240713
